FAERS Safety Report 6117280-7 (Version None)
Quarter: 2009Q1

REPORT INFORMATION
  Report Type: 
  Country: None (occurrence: None)
  Receive Date: 20090314
  Receipt Date: 20090112
  Transmission Date: 20090719
  Serious: No
  Sender: FDA-Public Use
  Company Number: US-ABBOTT-09P-163-0497170-00

PATIENT
  Sex: Female
  Weight: 95.34 kg

DRUGS (7)
  1. HUMIRA [Suspect]
     Indication: PSORIASIS
     Route: 058
     Dates: start: 20080401
  2. HUMIRA [Suspect]
     Indication: PSORIATIC ARTHROPATHY
  3. METHOTREXATE [Concomitant]
     Indication: PSORIASIS
     Dosage: 3(2.5) Q WK
     Route: 048
  4. METHOTREXATE [Concomitant]
     Indication: PSORIATIC ARTHROPATHY
  5. PRAVACHOL [Concomitant]
     Indication: BLOOD CHOLESTEROL INCREASED
     Dosage: QD
     Route: 048
     Dates: start: 20080601, end: 20081201
  6. BENAZEPRIL HYDROCHLORIDE [Concomitant]
     Indication: DIABETES PROPHYLAXIS
     Dosage: QD
     Route: 048
     Dates: start: 20080901, end: 20081201
  7. FOLIC ACID [Concomitant]
     Indication: VITAMIN SUPPLEMENTATION
     Route: 048

REACTIONS (2)
  - COUGH [None]
  - INCREASED UPPER AIRWAY SECRETION [None]
